FAERS Safety Report 16687174 (Version 4)
Quarter: 2020Q4

REPORT INFORMATION
  Report Type: Spontaneous
  Country: JP (occurrence: JP)
  Receive Date: 20190809
  Receipt Date: 20201130
  Transmission Date: 20210113
  Serious: Yes (Hospitalization, Other)
  Sender: FDA-Public Use
  Company Number: JP-GLAXOSMITHKLINE-JP2019JPN125861

PATIENT
  Age: 80 Year
  Sex: Female
  Weight: 40.6 kg

DRUGS (10)
  1. NIFEDIPINE. [Concomitant]
     Active Substance: NIFEDIPINE
     Indication: HYPERTENSION
     Dosage: 40 MG, BID
     Route: 048
  2. CALFINA TABLET [Concomitant]
     Dosage: 0.5 ?G, QD IN THE MORNING
     Route: 048
  3. VALTREX [Suspect]
     Active Substance: VALACYCLOVIR HYDROCHLORIDE
     Dosage: 1000 MG, BID
     Route: 048
     Dates: start: 20190423, end: 20190425
  4. ASPARA-CA TABLETS [Concomitant]
     Dosage: 200 MG, TID
     Route: 048
  5. TAKECAB TABLETS [Concomitant]
     Active Substance: VONOPRAZAN FUMARATE
     Dosage: 10 MG, QD IN THE MORNING
     Route: 048
  6. CEFALEXIN [Concomitant]
     Active Substance: CEPHALEXIN
     Dosage: 250 MG, QID
     Route: 048
  7. BETAMETHASONE. [Suspect]
     Active Substance: BETAMETHASONE
     Indication: PAIN
     Dosage: UNK
     Route: 050
     Dates: start: 20190425
  8. CELECOXIB. [Suspect]
     Active Substance: CELECOXIB
     Dosage: UNK
     Route: 048
  9. LIDOCAINE. [Suspect]
     Active Substance: LIDOCAINE
     Indication: PAIN
     Dosage: UNK
     Route: 050
     Dates: start: 20190425
  10. VALTREX [Suspect]
     Active Substance: VALACYCLOVIR HYDROCHLORIDE
     Indication: HERPES ZOSTER
     Dosage: 2500 MG, 1D
     Route: 048
     Dates: start: 20190422, end: 20190422

REACTIONS (14)
  - Depressed level of consciousness [Recovered/Resolved]
  - Anaesthetic complication [Unknown]
  - Toxicity to various agents [Unknown]
  - Vomiting [Unknown]
  - Bradykinesia [Recovered/Resolved]
  - Acute kidney injury [Recovered/Resolved]
  - Toxic encephalopathy [Recovered/Resolved]
  - Balance disorder [Unknown]
  - Loss of consciousness [Recovered/Resolved]
  - Decreased appetite [Recovered/Resolved]
  - Dysarthria [Recovered/Resolved]
  - Nervous system disorder [Unknown]
  - Headache [Recovering/Resolving]
  - Speech disorder [Recovered/Resolved]

NARRATIVE: CASE EVENT DATE: 20190424
